FAERS Safety Report 7046036-6 (Version None)
Quarter: 2010Q4

REPORT INFORMATION
  Report Type: 
  Country: None (occurrence: None)
  Receive Date: 20101014
  Receipt Date: 20101006
  Transmission Date: 20110411
  Serious: Yes (Hospitalization, Other)
  Sender: FDA-Public Use
  Company Number: CA-ABBOTT-10P-028-0676358-00

PATIENT
  Sex: Female

DRUGS (2)
  1. HUMIRA [Suspect]
     Indication: CROHN'S DISEASE
     Dosage: 80 MG LOADING DOSE
     Route: 058
     Dates: start: 20100927, end: 20100927
  2. HUMIRA [Suspect]
     Dosage: 80 MG LOADING DOSE WHILE HOSPITALIZED
     Dates: start: 20100928

REACTIONS (1)
  - LOSS OF CONSCIOUSNESS [None]
